FAERS Safety Report 21551152 (Version 1)
Quarter: 2022Q4

REPORT INFORMATION
  Report Type: Spontaneous
  Country: US (occurrence: None)
  Receive Date: 20221103
  Receipt Date: 20221103
  Transmission Date: 20230113
  Serious: No
  Sender: FDA-Public Use
  Company Number: None

PATIENT
  Age: 64 Year
  Sex: Male
  Weight: 93.67 kg

DRUGS (14)
  1. INLYTA [Suspect]
     Active Substance: AXITINIB
     Dosage: FREQUENCY : EVERY 12 HOURS;?
     Route: 048
  2. ALPRAZOLAM [Concomitant]
     Active Substance: ALPRAZOLAM
  3. DECADRON [Concomitant]
     Active Substance: DEXAMETHASONE
  4. KEYTRUDA [Concomitant]
     Active Substance: PEMBROLIZUMAB
  5. LEVOTHYROXINE [Concomitant]
     Active Substance: LEVOTHYROXINE
  6. LIPITOR [Concomitant]
     Active Substance: ATORVASTATIN CALCIUM
  7. MEGESTROL [Concomitant]
     Active Substance: MEGESTROL
  8. MIRALAX [Concomitant]
     Active Substance: POLYETHYLENE GLYCOL 3350
  9. NORVASC [Concomitant]
     Active Substance: AMLODIPINE BESYLATE
  10. OXYCODONE [Concomitant]
     Active Substance: OXYCODONE
  11. PREDNISONE [Concomitant]
     Active Substance: PREDNISONE
  12. STOOL SOFTENER (DOCUSATE) [Concomitant]
     Active Substance: DOCUSATE
  13. XGEVA [Concomitant]
     Active Substance: DENOSUMAB
  14. ZOFRAN [Concomitant]
     Active Substance: ONDANSETRON HYDROCHLORIDE

REACTIONS (1)
  - Cerebrovascular accident [None]
